FAERS Safety Report 6893810-2 (Version None)
Quarter: 2010Q3

REPORT INFORMATION
  Report Type: 
  Country: None (occurrence: None)
  Receive Date: 20100802
  Receipt Date: 20100723
  Transmission Date: 20110219
  Serious: No
  Sender: FDA-Public Use
  Company Number: US-BIOGENIDEC-2010BI011273

PATIENT
  Sex: Female

DRUGS (2)
  1. TYSABRI [Suspect]
     Indication: MULTIPLE SCLEROSIS
     Route: 042
     Dates: start: 20080825
  2. DETROL [Concomitant]

REACTIONS (8)
  - CHROMATURIA [None]
  - CONFUSIONAL STATE [None]
  - DYSURIA [None]
  - FALL [None]
  - GAIT DISTURBANCE [None]
  - GENERAL SYMPTOM [None]
  - MICTURITION URGENCY [None]
  - URINARY TRACT INFECTION [None]
